FAERS Safety Report 8905606 (Version 1)
Quarter: 2012Q4

REPORT INFORMATION
  Report Type: 
  Country: US (occurrence: US)
  Receive Date: 20121109
  Receipt Date: 20121109
  Transmission Date: 20130627
  Serious: Yes (Other)
  Sender: FDA-Public Use
  Company Number: PHHY2012US102094

PATIENT
  Sex: Male

DRUGS (16)
  1. GILENYA [Suspect]
     Indication: MULTIPLE SCLEROSIS
     Dosage: 0.5 mg, QD
     Route: 048
     Dates: start: 20110512
  2. CYMBALTA [Concomitant]
     Indication: PAIN
  3. LAMICTAL [Concomitant]
     Dosage: UNK UKN, UNK
  4. CALTRATE [Concomitant]
  5. AMRIX [Concomitant]
  6. BONIVA [Concomitant]
  7. ARICEPT [Concomitant]
  8. IBUPROFEN [Concomitant]
  9. SYNTHROID [Concomitant]
     Dosage: 50 ug, daily
  10. MULTIVITAMINS [Concomitant]
  11. OMEGA 3 [Concomitant]
     Dosage: 1 g, daily
  12. ANDROGEL [Concomitant]
  13. LEVOTHYROXINE [Concomitant]
  14. CALCIUM [Concomitant]
     Dosage: UNK
  15. VITAMIN B COMPLEX [Concomitant]
  16. VITAMIN D [Concomitant]

REACTIONS (1)
  - Atelectasis [Unknown]
